FAERS Safety Report 5679714-1 (Version None)
Quarter: 2008Q1

REPORT INFORMATION
  Report Type: 
  Country: None (occurrence: None)
  Receive Date: 20080325
  Receipt Date: 20080311
  Transmission Date: 20080703
  Serious: Yes (Other)
  Sender: FDA-Public Use
  Company Number: FR-GENENTECH-257935

PATIENT
  Sex: Female

DRUGS (2)
  1. AVASTIN [Suspect]
     Indication: BREAST CANCER METASTATIC
     Dosage: UNK, UNKNOWN
     Route: 065
     Dates: start: 20070601, end: 20080101
  2. TAXOL [Concomitant]
     Indication: BREAST CANCER METASTATIC
     Dates: start: 20070601, end: 20080101

REACTIONS (2)
  - DISEASE PROGRESSION [None]
  - DRUG ERUPTION [None]
